FAERS Safety Report 9059705 (Version 1)
Quarter: 2013Q1

REPORT INFORMATION
  Report Type: Spontaneous
  Country: US (occurrence: None)
  Receive Date: 20130206
  Receipt Date: 20130206
  Transmission Date: 20140127
  Serious: Yes (Hospitalization)
  Sender: FDA-Public Use
  Company Number: None

PATIENT
  Age: 70 Year
  Sex: Male

DRUGS (1)
  1. PRAVASTATIN [Suspect]
     Indication: HYPERLIPIDAEMIA
     Dosage: 40 MG AT BEDTIME PO
     Route: 048
     Dates: start: 20070827, end: 20130104

REACTIONS (5)
  - Diarrhoea [None]
  - Renal failure acute [None]
  - Blood creatine phosphokinase increased [None]
  - Myositis [None]
  - Myalgia [None]
